FAERS Safety Report 17590244 (Version 1)
Quarter: 2020Q1

REPORT INFORMATION
  Report Type: Spontaneous
  Country: CA (occurrence: CA)
  Receive Date: 20200327
  Receipt Date: 20200327
  Transmission Date: 20200409
  Serious: Yes (Other)
  Sender: FDA-Public Use
  Company Number: CA-B.I. PHARMACEUTICALS,INC./RIDGEFIELD-2020-BI-015907

PATIENT
  Age: 58 Year
  Sex: Female

DRUGS (11)
  1. SALBUTAMOL [Suspect]
     Active Substance: ALBUTEROL
     Indication: PRODUCT USED FOR UNKNOWN INDICATION
     Route: 065
  2. SINGULAIR [Suspect]
     Active Substance: MONTELUKAST SODIUM
     Indication: ASTHMA
     Route: 065
  3. ADVAIR HFA [Suspect]
     Active Substance: FLUTICASONE PROPIONATE\SALMETEROL XINAFOATE
     Indication: ASTHMA
     Route: 065
  4. SPIRIVA [Suspect]
     Active Substance: TIOTROPIUM BROMIDE MONOHYDRATE
     Indication: ASTHMA
     Route: 055
  5. MEPOLIZUMAB [Suspect]
     Active Substance: MEPOLIZUMAB
     Indication: ASTHMA
     Route: 065
  6. PREDNISONE. [Suspect]
     Active Substance: PREDNISONE
     Indication: LOWER RESPIRATORY TRACT INFECTION
     Route: 065
  7. PREDNISONE. [Suspect]
     Active Substance: PREDNISONE
     Indication: ASTHMA
  8. VENTOLIN [GUAIFENESIN;SALBUTAMOL SULFATE] [Suspect]
     Active Substance: ALBUTEROL\GUAIFENESIN
     Indication: ASTHMA
     Route: 065
  9. COMBIVENT [Suspect]
     Active Substance: ALBUTEROL SULFATE\IPRATROPIUM BROMIDE
     Indication: ASTHMA
     Route: 055
  10. HYDROXYZINE [Suspect]
     Active Substance: HYDROXYZINE HYDROCHLORIDE
     Indication: PRODUCT USED FOR UNKNOWN INDICATION
     Route: 065
  11. MEPOLIZUMAB [Suspect]
     Active Substance: MEPOLIZUMAB
     Indication: PRODUCT USED FOR UNKNOWN INDICATION
     Route: 042

REACTIONS (28)
  - Loss of personal independence in daily activities [Unknown]
  - Productive cough [Unknown]
  - Prolonged expiration [Unknown]
  - Sleep disorder due to a general medical condition [Unknown]
  - Infection [Unknown]
  - Respiratory disorder [Unknown]
  - Sputum discoloured [Unknown]
  - Respiratory symptom [Unknown]
  - Wheezing [Unknown]
  - Asthma [Unknown]
  - Dyspnoea at rest [Unknown]
  - Hypoxia [Unknown]
  - Pneumonia [Unknown]
  - Pyrexia [Unknown]
  - Skin laceration [Unknown]
  - Chest discomfort [Unknown]
  - Cough [Unknown]
  - Dyspnoea [Unknown]
  - Dyspnoea exertional [Unknown]
  - Eczema [Unknown]
  - Emphysema [Unknown]
  - Fall [Unknown]
  - Malaise [Unknown]
  - Diarrhoea [Unknown]
  - Rash pruritic [Unknown]
  - Seizure [Unknown]
  - Urticaria [Unknown]
  - Lower respiratory tract infection [Unknown]
